FAERS Safety Report 7669547-9 (Version None)
Quarter: 2011Q3

REPORT INFORMATION
  Report Type: 
  Country: None (occurrence: None)
  Receive Date: 20110808
  Receipt Date: 20110803
  Transmission Date: 20111222
  Serious: Yes (Hospitalization)
  Sender: FDA-Public Use
  Company Number: CA-BRISTOL-MYERS SQUIBB COMPANY-15936412

PATIENT
  Age: 47 Year
  Sex: Female

DRUGS (6)
  1. GABAPENTIN [Suspect]
  2. GLYBURIDE [Suspect]
     Indication: TYPE 2 DIABETES MELLITUS
  3. BLINDED: SAXAGLIPTIN [Suspect]
     Indication: TYPE 2 DIABETES MELLITUS
     Dosage: LAST DOSE ON 05JUL2011
     Dates: start: 20110328, end: 20110705
  4. METFORMIN HCL [Suspect]
     Indication: TYPE 2 DIABETES MELLITUS
  5. ASPIRIN [Concomitant]
     Dosage: ASPIRIN ={100 ASPIRIN =}100
     Dates: start: 20110628
  6. PLACEBO [Suspect]
     Indication: TYPE 2 DIABETES MELLITUS
     Dates: start: 20110328, end: 20110705

REACTIONS (1)
  - UROSEPSIS [None]
